FAERS Safety Report 17283049 (Version 2)
Quarter: 2022Q1

REPORT INFORMATION
  Report Type: Report from Study
  Country: GB (occurrence: GB)
  Receive Date: 20200117
  Receipt Date: 20220209
  Transmission Date: 20220423
  Serious: Yes (Hospitalization)
  Sender: FDA-Public Use
  Company Number: GB-NOVARTISPH-NVSC2020GB008957

PATIENT
  Sex: Female

DRUGS (1)
  1. COSENTYX [Suspect]
     Active Substance: SECUKINUMAB
     Indication: Psoriasis
     Dosage: 300 MG, UNKNOWN
     Route: 058
     Dates: start: 20190610

REACTIONS (3)
  - Back pain [Recovering/Resolving]
  - Movement disorder [Recovering/Resolving]
  - Spinal fracture [Recovering/Resolving]

NARRATIVE: CASE EVENT DATE: 20190610
